FAERS Safety Report 19477202 (Version 1)
Quarter: 2021Q2

REPORT INFORMATION
  Report Type: Spontaneous
  Country: US (occurrence: US)
  Receive Date: 20210629
  Receipt Date: 20210629
  Transmission Date: 20210717
  Serious: Yes (Other)
  Sender: FDA-Public Use
  Company Number: None

PATIENT
  Age: 43 Year
  Sex: Male
  Weight: 97.07 kg

DRUGS (4)
  1. MESALAMINE 1.2 GM [Suspect]
     Active Substance: MESALAMINE
     Indication: PROCTITIS
     Route: 048
     Dates: start: 20210108, end: 20210317
  2. MESALAMINE 1.2 GM [Suspect]
     Active Substance: MESALAMINE
     Indication: COLITIS ULCERATIVE
     Route: 048
     Dates: start: 20201022, end: 20210107
  3. MESALAMINE 1.2 GM [Suspect]
     Active Substance: MESALAMINE
     Indication: PROCTITIS
     Route: 048
     Dates: start: 20201022, end: 20210107
  4. MESALAMINE 1.2 GM [Suspect]
     Active Substance: MESALAMINE
     Indication: COLITIS ULCERATIVE
     Route: 048
     Dates: start: 20210108, end: 20210317

REACTIONS (6)
  - Arthralgia [None]
  - Mucous stools [None]
  - Abdominal pain [None]
  - Product substitution issue [None]
  - Haematochezia [None]
  - Frequent bowel movements [None]
